FAERS Safety Report 11728032 (Version 1)
Quarter: 2015Q4

REPORT INFORMATION
  Report Type: Spontaneous
  Country: US (occurrence: None)
  Receive Date: 20151110
  Receipt Date: 20151110
  Transmission Date: 20160304
  Serious: Yes (Other)
  Sender: FDA-Public Use
  Company Number: 1937531-2015-00013

PATIENT

DRUGS (1)
  1. ALCARE PLUS [Suspect]
     Active Substance: ALCOHOL

REACTIONS (4)
  - Skin discolouration [None]
  - Accidental exposure to product [None]
  - Product container issue [None]
  - Skin exfoliation [None]

NARRATIVE: CASE EVENT DATE: 20151021
